FAERS Safety Report 20332449 (Version 1)
Quarter: 2022Q1

REPORT INFORMATION
  Report Type: Spontaneous
  Country: MX (occurrence: None)
  Receive Date: 20220113
  Receipt Date: 20220113
  Transmission Date: 20220424
  Serious: Yes (Other)
  Sender: FDA-Public Use
  Company Number: 2022A015527

PATIENT
  Age: 11431 Day
  Sex: Female
  Weight: 85 kg

DRUGS (3)
  1. PULMICORT TURBUHALER [Suspect]
     Active Substance: BUDESONIDE
     Indication: Asthma
     Dosage: UNKNOWN DOSE, AS REQUIRED
     Route: 055
     Dates: start: 2020
  2. COMBIVENT [Concomitant]
     Active Substance: ALBUTEROL SULFATE\IPRATROPIUM BROMIDE
     Indication: Asthma
     Dates: start: 2020
  3. ATHOS [Concomitant]
     Indication: Cough

REACTIONS (6)
  - Asthmatic crisis [Unknown]
  - Device delivery system issue [Unknown]
  - Device issue [Unknown]
  - Device dispensing error [Unknown]
  - Drug dose omission by device [Unknown]
  - Device colour issue [Unknown]

NARRATIVE: CASE EVENT DATE: 20220106
